FAERS Safety Report 15563728 (Version 2)
Quarter: 2018Q4

REPORT INFORMATION
  Report Type: Report from Study
  Country: None (occurrence: IT)
  Receive Date: 20181029
  Receipt Date: 20181105
  Transmission Date: 20190205
  Serious: Yes (Hospitalization, Other)
  Sender: FDA-Public Use
  Company Number: IT-ABBVIE-18S-083-2530816-00

PATIENT
  Age: 74 Year
  Sex: Male

DRUGS (1)
  1. DUODOPA [Suspect]
     Active Substance: CARBIDOPA\LEVODOPA
     Indication: PARKINSON^S DISEASE
     Dosage: MD: 10+3, CR: 3, ED: 2
     Route: 050
     Dates: start: 20170510, end: 20181020

REACTIONS (2)
  - Gastroduodenal ulcer [Unknown]
  - Bezoar [Not Recovered/Not Resolved]

NARRATIVE: CASE EVENT DATE: 20181020
